FAERS Safety Report 14185442 (Version 20)
Quarter: 2022Q3

REPORT INFORMATION
  Report Type: Spontaneous
  Country: GB (occurrence: GB)
  Receive Date: 20171113
  Receipt Date: 20220815
  Transmission Date: 20221027
  Serious: Yes (Death, Hospitalization, Other)
  Sender: FDA-Public Use
  Company Number: GB-BAXTER-2017BAX038006

PATIENT
  Age: 82 Year
  Sex: Male
  Weight: 50 kg

DRUGS (28)
  1. FUROSEMIDE [Suspect]
     Active Substance: FUROSEMIDE
     Indication: Product used for unknown indication
     Dosage: 10 MILLIGRAM AS REQUIRED (10 MG/ML)
     Route: 065
  2. FUROSEMIDE [Suspect]
     Active Substance: FUROSEMIDE
     Dosage: 10 MG/ML, UNKNOWN
     Route: 065
  3. FUROSEMIDE [Suspect]
     Active Substance: FUROSEMIDE
     Dosage: 10 DOSAGE FORMS AS REQUIRED (10 MG/ML), SOLUTION FOR INJECTION
     Route: 065
  4. FUROSEMIDE [Suspect]
     Active Substance: FUROSEMIDE
     Dosage: UNK
     Route: 065
  5. FUROSEMIDE [Suspect]
     Active Substance: FUROSEMIDE
     Dosage: UNK
     Route: 065
  6. DIGOXIN [Suspect]
     Active Substance: DIGOXIN
     Indication: Product used for unknown indication
     Dosage: PRN
     Route: 065
  7. DIGOXIN [Suspect]
     Active Substance: DIGOXIN
     Dosage: UNK
     Route: 065
  8. DIGOXIN [Suspect]
     Active Substance: DIGOXIN
     Dosage: UNK
     Route: 065
  9. WARFARIN SODIUM [Suspect]
     Active Substance: WARFARIN SODIUM
     Indication: Product used for unknown indication
     Dosage: AS REQUIRED
     Route: 065
  10. WARFARIN SODIUM [Suspect]
     Active Substance: WARFARIN SODIUM
     Dosage: AS REQUIRED
     Route: 065
  11. WARFARIN SODIUM [Suspect]
     Active Substance: WARFARIN SODIUM
     Route: 065
  12. WARFARIN SODIUM [Suspect]
     Active Substance: WARFARIN SODIUM
     Route: 065
  13. WARFARIN SODIUM [Suspect]
     Active Substance: WARFARIN SODIUM
     Dosage: UNK
     Route: 065
  14. ELIQUIS [Suspect]
     Active Substance: APIXABAN
     Indication: Cerebrovascular accident prophylaxis
     Dosage: 2.5 MILLIGRAM (MG) TWICE A DAY
     Route: 048
     Dates: start: 2017, end: 2017
  15. ELIQUIS [Suspect]
     Active Substance: APIXABAN
     Indication: Atrial fibrillation
     Dosage: 2.5 MILLIGRAM TWICE DAILY
     Route: 048
  16. ELIQUIS [Suspect]
     Active Substance: APIXABAN
     Dosage: 5 MILLIGRAM ONCE DAILY
     Route: 048
     Dates: start: 2017
  17. PERINDOPRIL [Suspect]
     Active Substance: PERINDOPRIL
     Indication: Product used for unknown indication
     Dosage: AS REQUIRED
     Route: 048
  18. PERINDOPRIL [Suspect]
     Active Substance: PERINDOPRIL
     Dosage: AS REQUIRED
     Route: 065
  19. PERINDOPRIL [Suspect]
     Active Substance: PERINDOPRIL
     Dosage: UNK
     Route: 048
  20. PERINDOPRIL [Suspect]
     Active Substance: PERINDOPRIL
     Dosage: UNK
     Route: 065
  21. PERINDOPRIL [Suspect]
     Active Substance: PERINDOPRIL
     Dosage: UNK
     Route: 065
  22. SPIRONOLACTONE [Suspect]
     Active Substance: SPIRONOLACTONE
     Indication: Product used for unknown indication
     Dosage: AS REQUIRED
     Route: 065
  23. SPIRONOLACTONE [Suspect]
     Active Substance: SPIRONOLACTONE
     Dosage: AS REQUIRED
     Route: 065
  24. SPIRONOLACTONE [Suspect]
     Active Substance: SPIRONOLACTONE
     Route: 065
  25. SPIRONOLACTONE [Suspect]
     Active Substance: SPIRONOLACTONE
     Route: 065
  26. SPIRONOLACTONE [Suspect]
     Active Substance: SPIRONOLACTONE
     Dosage: UNK
     Route: 065
  27. ALLOPURINOL [Suspect]
     Active Substance: ALLOPURINOL
     Indication: Product used for unknown indication
     Dosage: PRN
     Route: 065
  28. ALLOPURINOL [Suspect]
     Active Substance: ALLOPURINOL
     Indication: Acute kidney injury
     Dosage: UNK
     Route: 065

REACTIONS (6)
  - Colon cancer [Fatal]
  - Abnormal loss of weight [Fatal]
  - Gastrointestinal haemorrhage [Not Recovered/Not Resolved]
  - Melaena [Recovered/Resolved]
  - Acute kidney injury [Recovered/Resolved]
  - Haemoglobin decreased [Unknown]

NARRATIVE: CASE EVENT DATE: 20170101
